FAERS Safety Report 4758770-9 (Version None)
Quarter: 2005Q3

REPORT INFORMATION
  Report Type: 
  Country: None (occurrence: None)
  Receive Date: 20050831
  Receipt Date: 20050831
  Transmission Date: 20060218
  Serious: Yes (Hospitalization, Other)
  Sender: FDA-Public Use
  Company Number: None

PATIENT
  Sex: Male
  Weight: 74 kg

DRUGS (5)
  1. DAUNOMYCIN [Suspect]
     Indication: ACUTE LYMPHOCYTIC LEUKAEMIA
     Dosage: SEE IMAGE
     Route: 042
     Dates: start: 20050809
  2. VINCRISTINE SULFATE [Suspect]
     Dosage: SEE IMAGE
     Route: 042
     Dates: start: 20050809
  3. PREDNISONE [Suspect]
     Dosage: SEE IMAGE
     Route: 048
     Dates: start: 20050809
  4. L-ASPARAGINASE [Suspect]
     Dosage: SEE IMAGE
     Route: 042
     Dates: start: 20050809
  5. METHOTREXATE [Suspect]
     Dosage: SEE IMAGE
     Route: 037
     Dates: start: 20050809

REACTIONS (2)
  - BLOOD CULTURE POSITIVE [None]
  - FEBRILE NEUTROPENIA [None]
